FAERS Safety Report 5317486-0 (Version None)
Quarter: 2007Q2

REPORT INFORMATION
  Report Type: 
  Country: None (occurrence: None)
  Receive Date: 20070502
  Receipt Date: 20070502
  Transmission Date: 20071010
  Serious: Yes (Hospitalization)
  Sender: FDA-Public Use
  Company Number: None

PATIENT
  Sex: Female
  Weight: 88 kg

DRUGS (4)
  1. SUNITINIB [Suspect]
     Indication: RENAL CANCER METASTATIC
     Dosage: 150 MG QDX38 DAYS ORAL
     Route: 048
     Dates: start: 20070314
  2. IRON COMPLEX [Concomitant]
  3. PEPCID [Concomitant]
  4. COMPAZINE [Concomitant]

REACTIONS (2)
  - ANAEMIA [None]
  - HAEMATURIA [None]
